FAERS Safety Report 18802818 (Version 4)
Quarter: 2021Q1

REPORT INFORMATION
  Report Type: Spontaneous
  Country: PL (occurrence: PL)
  Receive Date: 20210129
  Receipt Date: 20210220
  Transmission Date: 20210419
  Serious: Yes (Hospitalization, Other)
  Sender: FDA-Public Use
  Company Number: PL-AUROBINDO-AUR-APL-2020-039462

PATIENT
  Age: 68 Year
  Sex: Male

DRUGS (26)
  1. DOXAZOSIN [Interacting]
     Active Substance: DOXAZOSIN MESYLATE
     Indication: HYPERTENSION
  2. RIVAROXABAN [Interacting]
     Active Substance: RIVAROXABAN
     Indication: CEREBROVASCULAR ACCIDENT
     Dosage: 20 MILLIGRAM
     Route: 048
  3. PERAZINE [Interacting]
     Active Substance: PERAZINE
     Indication: INSOMNIA
     Dosage: UNK
     Route: 065
  4. METFORMIN [Concomitant]
     Active Substance: METFORMIN HYDROCHLORIDE
     Indication: PRODUCT USED FOR UNKNOWN INDICATION
     Dosage: UNK
     Route: 065
  5. DIGOXIN. [Concomitant]
     Active Substance: DIGOXIN
     Indication: PRODUCT USED FOR UNKNOWN INDICATION
     Dosage: UNK
     Route: 065
  6. QUETIAPINE. [Interacting]
     Active Substance: QUETIAPINE
     Dosage: 50 MILLIGRAM, ONCE A DAY, AT BEDTIME
     Route: 065
  7. CIPROFLOXACIN. [Interacting]
     Active Substance: CIPROFLOXACIN
     Indication: INFECTIOUS DISEASE CARRIER
     Dosage: 500 MILLIGRAM, TWO TIMES A DAY
     Route: 048
  8. CIPROFLOXACIN. [Interacting]
     Active Substance: CIPROFLOXACIN
     Dosage: 500 MILLIGRAM
     Route: 048
  9. CETIRIZINE [Suspect]
     Active Substance: CETIRIZINE HYDROCHLORIDE
     Indication: PRODUCT USED FOR UNKNOWN INDICATION
     Dosage: 10 MILLIGRAM, ONCE A DAY
     Route: 065
  10. TRAZODONE [Interacting]
     Active Substance: TRAZODONE HYDROCHLORIDE
     Indication: INSOMNIA
     Dosage: 50 MILLIGRAM, ONCE A DAY, 3 HOURS BEFORE BEDTIME
     Route: 065
  11. FLUCONAZOLE. [Interacting]
     Active Substance: FLUCONAZOLE
     Dosage: 100 MILLIGRAM
     Route: 065
  12. FUROSEMIDE. [Suspect]
     Active Substance: FUROSEMIDE
     Indication: CEREBROVASCULAR ACCIDENT
  13. METOPROLOL. [Interacting]
     Active Substance: METOPROLOL
     Indication: ATRIAL FIBRILLATION
     Dosage: 100 MILLIGRAM, ONCE A DAY
     Route: 048
  14. RIVAROXABAN [Interacting]
     Active Substance: RIVAROXABAN
     Indication: ATRIAL FIBRILLATION
  15. QUETIAPINE/MYLAN [Interacting]
     Active Substance: QUETIAPINE FUMARATE
     Indication: INSOMNIA
     Dosage: 50 MILLIGRAM, ONCE A DAY
     Route: 065
  16. ENALAPRIL [Concomitant]
     Active Substance: ENALAPRIL
     Indication: PRODUCT USED FOR UNKNOWN INDICATION
     Dosage: UNK
     Route: 065
  17. ATORVASTATIN [Suspect]
     Active Substance: ATORVASTATIN
     Indication: ATRIAL FIBRILLATION
  18. DOXAZOSIN [Interacting]
     Active Substance: DOXAZOSIN MESYLATE
     Indication: CARDIAC FAILURE
     Dosage: UNK
     Route: 065
  19. FLUCONAZOLE. [Suspect]
     Active Substance: FLUCONAZOLE
     Indication: INFECTIOUS DISEASE CARRIER
     Dosage: 100 MILLIGRAM, TWO TIMES A DAY
     Route: 065
  20. QUETIAPINE. [Interacting]
     Active Substance: QUETIAPINE
     Indication: INSOMNIA
     Dosage: 25 MILLIGRAM, ONCE A DAY
     Route: 065
  21. EMPAGLIFLOZIN [Concomitant]
     Active Substance: EMPAGLIFLOZIN
     Indication: PRODUCT USED FOR UNKNOWN INDICATION
     Dosage: UNK
     Route: 065
  22. FUROSEMIDE. [Suspect]
     Active Substance: FUROSEMIDE
     Indication: ATRIAL FIBRILLATION
     Dosage: 40 MILLIGRAM
     Route: 048
  23. METOPROLOL. [Interacting]
     Active Substance: METOPROLOL
     Indication: CEREBROVASCULAR ACCIDENT
  24. EPLERENONE. [Concomitant]
     Active Substance: EPLERENONE
     Indication: PRODUCT USED FOR UNKNOWN INDICATION
     Dosage: UNK
     Route: 065
  25. ATORVASTATIN [Suspect]
     Active Substance: ATORVASTATIN
     Indication: CEREBROVASCULAR ACCIDENT
     Dosage: 40 MILLIGRAM, ONCE A DAY
     Route: 048
  26. DIAZEPAM. [Interacting]
     Active Substance: DIAZEPAM
     Indication: INSOMNIA
     Dosage: 10 MILLIGRAM, ONCE A DAY
     Route: 065

REACTIONS (11)
  - Drug interaction [Recovered/Resolved]
  - Penile haemorrhage [Recovered/Resolved]
  - Sedation [Unknown]
  - Head injury [Unknown]
  - Fall [Unknown]
  - Pruritus genital [Recovered/Resolved]
  - Pruritus [Recovered/Resolved]
  - Somnolence [Unknown]
  - Penis injury [Recovered/Resolved]
  - Haemorrhage [Recovered/Resolved]
  - Hypotonia [Unknown]
